FAERS Safety Report 8302340-2 (Version None)
Quarter: 2012Q1

REPORT INFORMATION
  Report Type: 
  Country: None (occurrence: None)
  Receive Date: 20120326
  Receipt Date: 20111202
  Transmission Date: 20120608
  Serious: Yes (Other)
  Sender: FDA-Public Use
  Company Number: PHHY2011US28023

PATIENT
  Age: 48 Year
  Sex: Female

DRUGS (6)
  1. VIVELLE-DOT [Suspect]
     Dosage: 0.1MG, TRANSDERMAL
     Route: 062
  2. DIOVAN HCT [Concomitant]
  3. VIVELLE-DOT [Suspect]
     Dosage: 0.1 MG, TWICE PER WEEK, TRANSDERMAL
     Route: 062
  4. PREVACID [Concomitant]
  5. THYROID TAB [Concomitant]
  6. SINGULAIR [Concomitant]

REACTIONS (12)
  - DIZZINESS [None]
  - WRONG TECHNIQUE IN DRUG USAGE PROCESS [None]
  - APPLICATION SITE SCAR [None]
  - FATIGUE [None]
  - INCORRECT DOSE ADMINISTERED [None]
  - SYNCOPE [None]
  - EXPIRED DRUG ADMINISTERED [None]
  - MENOPAUSAL SYMPTOMS [None]
  - DRUG INEFFECTIVE [None]
  - DEPRESSION [None]
  - APPLICATION SITE PAIN [None]
  - FEELING ABNORMAL [None]
